FAERS Safety Report 10265550 (Version 1)
Quarter: 2014Q2

REPORT INFORMATION
  Report Type: Spontaneous
  Country: US (occurrence: None)
  Receive Date: 20140625
  Receipt Date: 20140625
  Transmission Date: 20141212
  Serious: Yes (Hospitalization, Other)
  Sender: FDA-Public Use
  Company Number: None

PATIENT
  Age: 50 Year
  Sex: Female

DRUGS (3)
  1. METHYLPHENIDATE [Suspect]
     Indication: ATTENTION DEFICIT/HYPERACTIVITY DISORDER
     Dosage: 3 TABLETS, QD, ORAL
     Route: 048
     Dates: start: 20131113, end: 20140624
  2. BUPROPION [Concomitant]
  3. FLUOXETINE [Concomitant]

REACTIONS (2)
  - Acute myocardial infarction [None]
  - Product substitution issue [None]
